FAERS Safety Report 18947268 (Version 4)
Quarter: 2021Q1

REPORT INFORMATION
  Report Type: Report from Study
  Country: KR (occurrence: KR)
  Receive Date: 20210226
  Receipt Date: 20210329
  Transmission Date: 20210420
  Serious: Yes (Death, Life-Threatening, Hospitalization)
  Sender: FDA-Public Use
  Company Number: KR-CELGENEUS-KOR-20210206238

PATIENT
  Age: 69 Year
  Sex: Male
  Weight: 55 kg

DRUGS (16)
  1. MEGESTROL ACETATE. [Concomitant]
     Active Substance: MEGESTROL ACETATE
     Indication: PROPHYLAXIS
     Dosage: 5 MILLILITER
     Route: 048
     Dates: start: 20201210
  2. NASERON [Concomitant]
     Active Substance: RAMOSETRON HYDROCHLORIDE
     Indication: CHEMOTHERAPY SIDE EFFECT PROPHYLAXIS
     Dosage: .3 MILLIGRAM
     Route: 048
     Dates: start: 20210126, end: 20210126
  3. FLUCYTOSINE. [Concomitant]
     Active Substance: FLUCYTOSINE
     Indication: PRODUCT USED FOR UNKNOWN INDICATION
     Route: 065
  4. ABRAXANE [Suspect]
     Active Substance: PACLITAXEL
     Indication: NON-SMALL CELL LUNG CANCER STAGE IV
     Dosage: 100 MILLIGRAM/SQ. METER
     Route: 042
     Dates: start: 20201119, end: 20210121
  5. PEMBROLIZUMAB. [Suspect]
     Active Substance: PEMBROLIZUMAB
     Dosage: 200 MILLIGRAM
     Route: 042
     Dates: start: 20201231, end: 20210126
  6. MAGNESIUM OXIDE. [Concomitant]
     Active Substance: MAGNESIUM OXIDE
     Indication: CONSTIPATION PROPHYLAXIS
     Dosage: 1500 MILLIGRAM
     Route: 048
     Dates: start: 20201210
  7. ESOMEPRAZOLE. [Concomitant]
     Active Substance: ESOMEPRAZOLE MAGNESIUM
     Indication: GASTRITIS PROPHYLAXIS
     Dosage: 40 MILLIGRAM
     Route: 048
     Dates: start: 20201210
  8. DICLOFENAC [Concomitant]
     Active Substance: DICLOFENAC
     Indication: STOMATITIS
     Route: 048
     Dates: start: 20201224
  9. PEMBROLIZUMAB. [Suspect]
     Active Substance: PEMBROLIZUMAB
     Indication: NON-SMALL CELL LUNG CANCER STAGE IV
     Dosage: 200 MILLIGRAM
     Route: 042
     Dates: start: 20201119, end: 20201210
  10. ABRAXANE [Suspect]
     Active Substance: PACLITAXEL
     Dosage: 100 MILLIGRAM/SQ. METER
     Route: 042
     Dates: start: 20210126, end: 20210126
  11. CARBOPLATIN. [Suspect]
     Active Substance: CARBOPLATIN
     Indication: NON-SMALL CELL LUNG CANCER STAGE IV
     Dosage: AUC OF 6 MG/ML/MIN
     Route: 042
     Dates: start: 20201119, end: 20201231
  12. CARBOPLATIN. [Suspect]
     Active Substance: CARBOPLATIN
     Dosage: AUC OF 6 MG/ML/MIN
     Route: 042
     Dates: start: 20210126, end: 20210126
  13. AMPHOTERICIN B DEOXYCHOLATE [Concomitant]
     Active Substance: AMPHOTERICIN B
     Indication: PRODUCT USED FOR UNKNOWN INDICATION
     Route: 065
  14. PENIRAMIN [Concomitant]
     Indication: CHEMOTHERAPY SIDE EFFECT PROPHYLAXIS
     Dosage: 4 MILLIGRAM
     Route: 042
     Dates: start: 20210126, end: 20210126
  15. GLIATILIN [Concomitant]
     Active Substance: CHOLINE ALFOSCERATE
     Indication: LUNG CANCER METASTATIC
     Dosage: 1200 MILLIGRAM
     Route: 048
     Dates: start: 20201210
  16. DEXAMETHASONE. [Concomitant]
     Active Substance: DEXAMETHASONE
     Indication: CHEMOTHERAPY SIDE EFFECT PROPHYLAXIS
     Dosage: 8 MILLIGRAM
     Route: 042
     Dates: start: 20210126, end: 20210126

REACTIONS (1)
  - Meningitis cryptococcal [Fatal]

NARRATIVE: CASE EVENT DATE: 20210208
